FAERS Safety Report 21265023 (Version 3)
Quarter: 2022Q4

REPORT INFORMATION
  Report Type: Spontaneous
  Country: FR (occurrence: FR)
  Receive Date: 20220829
  Receipt Date: 20221001
  Transmission Date: 20230113
  Serious: Yes (Hospitalization)
  Sender: FDA-Public Use
  Company Number: None

PATIENT
  Age: 79 Year
  Sex: Female
  Weight: 47.6 kg

DRUGS (8)
  1. MIRTAZAPINE [Suspect]
     Active Substance: MIRTAZAPINE
     Indication: Depression
     Dosage: UNIT DOSE :  15 MG, FREQUENCY TIME : 1 DAY
     Route: 065
     Dates: start: 20220713, end: 20220804
  2. MIRTAZAPINE [Suspect]
     Active Substance: MIRTAZAPINE
     Dosage: 7.5 MG
     Dates: start: 20220616, end: 20220712
  3. AMLODIPINE [Suspect]
     Active Substance: AMLODIPINE BESYLATE
     Indication: Hypertension
     Dosage: THERAPY END DATE : NASK , UNIT DOSE :  5 MG, FREQUENCY TIME : 1 DAY
     Route: 065
     Dates: start: 20220801, end: 20220804
  4. FUROSEMIDE [Suspect]
     Active Substance: FUROSEMIDE
     Indication: Cardiac failure
     Dosage: UNIT DOSE :  125 MG, FREQUENCY TIME : 1 DAY
     Route: 065
     Dates: start: 20220731, end: 20220803
  5. KARDEGIC [Concomitant]
     Active Substance: ASPIRIN DL-LYSINE
     Indication: Product used for unknown indication
     Dosage: 75 MG, FREQUENCY TIME : 1 DAY , THERAPY START DATE : ASKU , UNIT DOSE AND STRENGTH : 75 MG
  6. LOPERAMIDE [Concomitant]
     Active Substance: LOPERAMIDE
     Indication: Diarrhoea
     Route: 065
     Dates: start: 20220801, end: 20220809
  7. BISOPROLOL FUMARATE [Concomitant]
     Active Substance: BISOPROLOL FUMARATE
     Indication: Hypertension
     Dates: start: 20220731
  8. LANSOPRAZOLE [Concomitant]
     Active Substance: LANSOPRAZOLE
     Indication: Gastrooesophageal reflux prophylaxis
     Dates: start: 20220731, end: 20220806

REACTIONS (1)
  - Neutropenia [Recovered/Resolved]

NARRATIVE: CASE EVENT DATE: 20220802
